FAERS Safety Report 21061661 (Version 2)
Quarter: 2022Q3

REPORT INFORMATION
  Report Type: Spontaneous
  Country: CH (occurrence: CH)
  Receive Date: 20220709
  Receipt Date: 20220901
  Transmission Date: 20221027
  Serious: No
  Sender: FDA-Public Use
  Company Number: CH-BIOGEN-2022BI01136017

PATIENT
  Age: 77 Year
  Sex: Female

DRUGS (7)
  1. ADUCANUMAB [Suspect]
     Active Substance: ADUCANUMAB
     Indication: Dementia Alzheimer^s type
     Dosage: INFUSION 1
     Route: 050
     Dates: start: 20220107
  2. ADUCANUMAB [Suspect]
     Active Substance: ADUCANUMAB
     Dosage: INFUSION 2
     Route: 050
     Dates: start: 20220209
  3. ADUCANUMAB [Suspect]
     Active Substance: ADUCANUMAB
     Dosage: INFUSION 3
     Route: 050
     Dates: start: 20220311
  4. ADUCANUMAB [Suspect]
     Active Substance: ADUCANUMAB
     Dosage: INFUSION 4
     Route: 050
     Dates: start: 20220412
  5. ADUCANUMAB [Suspect]
     Active Substance: ADUCANUMAB
     Dosage: INFUSION 5
     Route: 050
     Dates: start: 20220511
  6. ADUCANUMAB [Suspect]
     Active Substance: ADUCANUMAB
     Dosage: INFUSION 6
     Route: 050
     Dates: start: 20220608
  7. RIVASTIGMINE [Concomitant]
     Active Substance: RIVASTIGMINE
     Indication: Product used for unknown indication
     Route: 050
     Dates: start: 2021

REACTIONS (2)
  - Amyloid related imaging abnormality-oedema/effusion [Not Recovered/Not Resolved]
  - Amyloid related imaging abnormality-microhaemorrhages and haemosiderin deposits [Not Recovered/Not Resolved]

NARRATIVE: CASE EVENT DATE: 20220624
